FAERS Safety Report 6528639-8 (Version None)
Quarter: 2010Q1

REPORT INFORMATION
  Report Type: 
  Country: None (occurrence: None)
  Receive Date: 20100105
  Receipt Date: 20100105
  Transmission Date: 20100710
  Serious: Yes (Life-Threatening, Other)
  Sender: FDA-Public Use
  Company Number: None

PATIENT
  Age: 81 Year
  Sex: Female
  Weight: 52.6173 kg

DRUGS (2)
  1. ASACOL HD [Suspect]
     Indication: COLITIS ULCERATIVE
     Dosage: 1600 MG. BID PO
     Route: 048
     Dates: start: 20091210, end: 20091230
  2. ASACOL HD -MESALAMINE- DELAYED-RELEASE TABLETS [Concomitant]

REACTIONS (3)
  - FEAR [None]
  - PRODUCT QUALITY ISSUE [None]
  - SUICIDAL IDEATION [None]
